FAERS Safety Report 8706091 (Version 5)
Quarter: 2013Q4

REPORT INFORMATION
  Report Type: Spontaneous
  Country: US (occurrence: US)
  Receive Date: 20120803
  Receipt Date: 20131219
  Transmission Date: 20140711
  Serious: Yes (Hospitalization, Disabling, Other)
  Sender: FDA-Public Use
  Company Number: US-009507513-1208USA000205

PATIENT
  Sex: Female
  Weight: 52.15 kg

DRUGS (1)
  1. NUVARING [Suspect]
     Indication: CONTRACEPTION
     Dosage: UNK
     Route: 067
     Dates: start: 20090222, end: 200908

REACTIONS (12)
  - Abortion spontaneous [Unknown]
  - Pulmonary embolism [Unknown]
  - Exposure during pregnancy [Unknown]
  - Musculoskeletal chest pain [Unknown]
  - Vomiting [Unknown]
  - Nausea [Unknown]
  - Dysuria [Unknown]
  - Pulmonary infarction [Unknown]
  - Cervical dysplasia [Unknown]
  - Gonorrhoea [Unknown]
  - Chlamydial infection [Unknown]
  - Hypoxia [Unknown]
